FAERS Safety Report 20873894 (Version 2)
Quarter: 2022Q3

REPORT INFORMATION
  Report Type: Spontaneous
  Country: US (occurrence: US)
  Receive Date: 20220525
  Receipt Date: 20220926
  Transmission Date: 20221027
  Serious: Yes (Other)
  Sender: FDA-Public Use
  Company Number: US-BIOGEN-2022BI01124295

PATIENT
  Sex: Female

DRUGS (1)
  1. TECFIDERA [Suspect]
     Active Substance: DIMETHYL FUMARATE
     Indication: Product used for unknown indication
     Route: 050

REACTIONS (6)
  - Spinal compression fracture [Unknown]
  - Nephrolithiasis [Unknown]
  - Cough [Unknown]
  - Muscle strain [Unknown]
  - Nausea [Unknown]
  - Urinary tract infection [Unknown]
